FAERS Safety Report 6601346-9 (Version None)
Quarter: 2010Q1

REPORT INFORMATION
  Report Type: 
  Country: None (occurrence: None)
  Receive Date: 20100224
  Receipt Date: 20100224
  Transmission Date: 20100710
  Serious: No
  Sender: FDA-Public Use
  Company Number: None

PATIENT

DRUGS (1)
  1. AVALIDE [Suspect]
     Dates: start: 20100209, end: 20100221

REACTIONS (9)
  - ABDOMINAL DISTENSION [None]
  - AGGRESSION [None]
  - INSOMNIA [None]
  - NIGHT SWEATS [None]
  - PAIN IN EXTREMITY [None]
  - PRODUCT QUALITY ISSUE [None]
  - PRURITUS [None]
  - URTICARIA [None]
  - WEIGHT INCREASED [None]
